FAERS Safety Report 4847454-4 (Version None)
Quarter: 2005Q4

REPORT INFORMATION
  Report Type: 
  Country: None (occurrence: None)
  Receive Date: 20051202
  Receipt Date: 20051121
  Transmission Date: 20060501
  Serious: Yes (Life-Threatening)
  Sender: FDA-Public Use
  Company Number: 219721

PATIENT
  Age: 74 Year
  Sex: Female

DRUGS (3)
  1. MABTHERA (RITUXIMAB) CONC FOR SOLUTION FOR INFUSION [Suspect]
     Indication: NON-HODGKIN'S LYMPHOMA
     Dosage: 375 MG/M2, INTRAVENOUS
     Route: 042
     Dates: start: 20020101, end: 20051019
  2. DOXAZOSIN MESYLATE [Concomitant]
  3. ASPIRIN [Concomitant]

REACTIONS (4)
  - BRONCHOSPASM [None]
  - EPILEPSY [None]
  - INFUSION RELATED REACTION [None]
  - MYOCARDIAL INFARCTION [None]
